FAERS Safety Report 8222216-9 (Version None)
Quarter: 2012Q1

REPORT INFORMATION
  Report Type: 
  Country: None (occurrence: None)
  Receive Date: 20120307
  Receipt Date: 20110624
  Transmission Date: 20120608
  Serious: Yes (Other)
  Sender: FDA-Public Use
  Company Number: PHHY2011US50821

PATIENT
  Age: 5 Year
  Sex: Female
  Weight: 18.3 kg

DRUGS (2)
  1. AFINITOR [Suspect]
     Indication: TUBEROUS SCLEROSIS
     Dosage: 2.5 MG, DAILY, ORAL
     Route: 048
     Dates: start: 20110222
  2. DIASTAT [Concomitant]

REACTIONS (4)
  - NEOPLASM PROGRESSION [None]
  - POOR QUALITY SLEEP [None]
  - MOOD ALTERED [None]
  - DECREASED APPETITE [None]
